FAERS Safety Report 8578565-8 (Version None)
Quarter: 2012Q3

REPORT INFORMATION
  Report Type: 
  Country: None (occurrence: None)
  Receive Date: 20120731
  Receipt Date: 20120731
  Transmission Date: 20120928
  Serious: Yes (Disabling)
  Sender: FDA-Public Use
  Company Number: None

PATIENT
  Age: 27 Year
  Sex: Male
  Weight: 65.7716 kg

DRUGS (1)
  1. BUPROPION HCL [Suspect]
     Indication: ANXIETY
     Dosage: 300MG ONCE DAILY PO
     Route: 048
     Dates: start: 20110919, end: 20111027

REACTIONS (4)
  - PENILE PAIN [None]
  - PRIAPISM [None]
  - PENIS INJURY [None]
  - ERECTILE DYSFUNCTION [None]
